FAERS Safety Report 7790513-7 (Version None)
Quarter: 2011Q3

REPORT INFORMATION
  Report Type: 
  Country: None (occurrence: None)
  Receive Date: 20110930
  Receipt Date: 20110921
  Transmission Date: 20111222
  Serious: Yes (Hospitalization)
  Sender: FDA-Public Use
  Company Number: SE-JNJFOC-20110909133

PATIENT
  Sex: Male

DRUGS (8)
  1. METOPROLOL [Concomitant]
  2. WARFARIN SODIUM [Interacting]
     Indication: ATRIAL FIBRILLATION
     Route: 048
  3. ALVEDON [Concomitant]
     Route: 048
  4. IBUPROFEN [Suspect]
     Indication: PRODUCT USED FOR UNKNOWN INDICATION
     Route: 048
     Dates: start: 20110718, end: 20110722
  5. BENSYLPENICILLIN [Concomitant]
     Route: 050
  6. RAMIPRIL [Concomitant]
  7. CHLORAMPHENICOL [Interacting]
     Indication: PRODUCT USED FOR UNKNOWN INDICATION
     Route: 047
     Dates: start: 20110718, end: 20110725
  8. SIMVASTATIN [Concomitant]

REACTIONS (4)
  - PNEUMONIA [None]
  - DRUG INTERACTION [None]
  - GASTROINTESTINAL HAEMORRHAGE [None]
  - HYPERSENSITIVITY [None]
